FAERS Safety Report 21519784 (Version 1)
Quarter: 2022Q4

REPORT INFORMATION
  Report Type: Spontaneous
  Country: US (occurrence: US)
  Receive Date: 20221028
  Receipt Date: 20221028
  Transmission Date: 20230113
  Serious: Yes (Other)
  Sender: FDA-Public Use
  Company Number: US-MLMSERVICE-20221014-3863281-2

PATIENT
  Age: 18 Year
  Sex: Male
  Weight: 66.5 kg

DRUGS (9)
  1. FENTANYL CITRATE [Suspect]
     Active Substance: FENTANYL CITRATE
     Indication: Induction of anaesthesia
     Dosage: 250 UG (3.9 UG/KG)
  2. PROPOFOL [Suspect]
     Active Substance: PROPOFOL
     Indication: Induction of anaesthesia
     Dosage: 360 MG (5.4  MG/KG)
  3. PROPOFOL [Suspect]
     Active Substance: PROPOFOL
     Indication: Maintenance of anaesthesia
     Dosage: 2.46 G (110-150 UG/KG/MIN)
  4. PROPOFOL [Suspect]
     Active Substance: PROPOFOL
     Dosage: 366 MG
  5. HYDROMORPHONE HYDROCHLORIDE [Suspect]
     Active Substance: HYDROMORPHONE HYDROCHLORIDE
     Dosage: 2 MG (0.03MG/KG)
     Route: 042
  6. MIDAZOLAM [Suspect]
     Active Substance: MIDAZOLAM
     Indication: Anxiolytic therapy
     Dosage: 2 MG (0.03 MG/KG)
     Route: 042
  7. METHADONE [Suspect]
     Active Substance: METHADONE HYDROCHLORIDE
     Indication: General anaesthesia
     Dosage: 20 MG (0.3 MG/KG)
     Route: 042
  8. REMIFENTANIL [Suspect]
     Active Substance: REMIFENTANIL
     Indication: Maintenance of anaesthesia
     Dosage: 7 MG (0.2-0.4 UG/KG/MIN)
  9. SERTRALINE [Concomitant]
     Active Substance: SERTRALINE HYDROCHLORIDE
     Indication: Depression
     Dosage: UNK

REACTIONS (3)
  - Hypercapnia [Unknown]
  - Respiratory depression [Unknown]
  - Somnolence [Unknown]
